FAERS Safety Report 5636492-X (Version None)
Quarter: 2008Q1

REPORT INFORMATION
  Report Type: 
  Country: None (occurrence: None)
  Receive Date: 20080225
  Receipt Date: 20080214
  Transmission Date: 20080703
  Serious: Yes (Life-Threatening, Hospitalization)
  Sender: FDA-Public Use
  Company Number: BE-ELI_LILLY_AND_COMPANY-BE200802003437

PATIENT
  Age: 51 Year
  Sex: Male

DRUGS (4)
  1. ALIMTA [Suspect]
     Indication: METASTASES TO BONE
     Dosage: UNK, UNKNOWN
     Route: 042
  2. CORTICOSTEROID NOS [Concomitant]
     Dosage: UNK, UNKNOWN
  3. VITAMIN B-12 [Concomitant]
     Dosage: UNK, UNKNOWN
  4. FOLIC ACID [Concomitant]
     Dosage: UNK, UNKNOWN

REACTIONS (3)
  - NEUTROPENIA [None]
  - THROMBOCYTOPENIA [None]
  - VASCULITIS GASTROINTESTINAL [None]
